FAERS Safety Report 7446604-3 (Version None)
Quarter: 2011Q2

REPORT INFORMATION
  Report Type: 
  Country: None (occurrence: None)
  Receive Date: 20110429
  Receipt Date: 20110420
  Transmission Date: 20111010
  Serious: Yes (Hospitalization)
  Sender: FDA-Public Use
  Company Number: PHHY2011IT33077

PATIENT
  Sex: Male

DRUGS (2)
  1. CARVEDILOL [Suspect]
  2. AMIODARONE [Suspect]

REACTIONS (2)
  - HYPERKALAEMIA [None]
  - BRADYCARDIA [None]
